FAERS Safety Report 4361470-0 (Version None)
Quarter: 2004Q2

REPORT INFORMATION
  Report Type: 
  Country: None (occurrence: None)
  Receive Date: 20040517
  Receipt Date: 20040504
  Transmission Date: 20050107
  Serious: No
  Sender: FDA-Public Use
  Company Number: 04H-163-0257107-00

PATIENT
  Age: 29 Year
  Sex: Female

DRUGS (1)
  1. MAGNESIUM SULFATE [Suspect]
     Dosage: 6 GM, ONCE, IV BOLUS      SEE IMAGE
     Route: 040
     Dates: start: 20040301, end: 20040301

REACTIONS (5)
  - BLOOD MAGNESIUM INCREASED [None]
  - DRUG EXPOSURE DURING PREGNANCY [None]
  - DYSPNOEA [None]
  - HEART RATE DECREASED [None]
  - LETHARGY [None]
